FAERS Safety Report 15775842 (Version 1)
Quarter: 2018Q4

REPORT INFORMATION
  Report Type: Spontaneous
  Country: CN (occurrence: CN)
  Receive Date: 20181231
  Receipt Date: 20181231
  Transmission Date: 20190205
  Serious: Yes (Other)
  Sender: FDA-Public Use
  Company Number: CN-ROCHE-2237204

PATIENT
  Age: 52 Year
  Sex: Female

DRUGS (1)
  1. AVASTIN [Suspect]
     Active Substance: BEVACIZUMAB
     Indication: LUNG ADENOCARCINOMA
     Dosage: EVERY 3 WEEKS
     Route: 065
     Dates: start: 20150712, end: 201511

REACTIONS (8)
  - Asthenia [Unknown]
  - Hypoaesthesia [Recovering/Resolving]
  - Hepatic function abnormal [Unknown]
  - Gastrointestinal toxicity [Unknown]
  - Bone marrow failure [Unknown]
  - Headache [Unknown]
  - Decreased appetite [Unknown]
  - Disease progression [Unknown]
